FAERS Safety Report 18785354 (Version 2)
Quarter: 2021Q1

REPORT INFORMATION
  Report Type: Spontaneous
  Country: CA (occurrence: CA)
  Receive Date: 20210125
  Receipt Date: 20210209
  Transmission Date: 20210419
  Serious: Yes (Other)
  Sender: FDA-Public Use
  Company Number: CA-PURDUE-USA-2020-0197663

PATIENT
  Sex: Female

DRUGS (2)
  1. OXYCONTIN [Suspect]
     Active Substance: OXYCODONE HYDROCHLORIDE
     Indication: PAIN
     Dosage: UNK
     Route: 048
  2. OXYFAST [Suspect]
     Active Substance: OXYCODONE
     Indication: PRODUCT USED FOR UNKNOWN INDICATION
     Dosage: UNK
     Route: 065

REACTIONS (17)
  - Restless legs syndrome [Unknown]
  - Pyrexia [Unknown]
  - Dehydration [Unknown]
  - Myalgia [Unknown]
  - Head injury [Unknown]
  - Seizure [Unknown]
  - Drug dependence [Unknown]
  - Anxiety [Unknown]
  - Decreased appetite [Unknown]
  - Drug tolerance [Unknown]
  - Somnolence [Unknown]
  - Dizziness [Unknown]
  - Panic attack [Unknown]
  - Tremor [Unknown]
  - Depression [Unknown]
  - Concussion [Unknown]
  - Drug withdrawal syndrome [Unknown]
